FAERS Safety Report 5648000-8 (Version None)
Quarter: 2008Q1

REPORT INFORMATION
  Report Type: 
  Country: None (occurrence: None)
  Receive Date: 20080131
  Receipt Date: 20071213
  Transmission Date: 20080703
  Serious: No
  Sender: FDA-Public Use
  Company Number: US200711006433

PATIENT
  Age: 63 Year
  Sex: Male
  Weight: 84.8 kg

DRUGS (8)
  1. BYETTA [Suspect]
     Indication: TYPE 2 DIABETES MELLITUS
     Dosage: 5, 10 UG, 2/D, SUBCUTANEOUS
     Route: 058
     Dates: start: 20070301, end: 20070901
  2. BYETTA [Suspect]
     Indication: TYPE 2 DIABETES MELLITUS
     Dosage: 5, 10 UG, 2/D, SUBCUTANEOUS
     Route: 058
     Dates: start: 20070901, end: 20071026
  3. EXENATIDE PEN, DISPOSABLE DEVICE (EXENATIDE PEN) [Concomitant]
  4. GLYBURIDE [Concomitant]
  5. METFORMIN HCL [Concomitant]
  6. FLEET (BISACODYL, SODIUM PHOSPHATE DIBASIC, SODIUM PHOSPHATE MONOBASIC [Concomitant]
  7. LISINOPRIL [Concomitant]
  8. PRILOSEC [Concomitant]

REACTIONS (7)
  - ABDOMINAL PAIN UPPER [None]
  - BLOOD PRESSURE INCREASED [None]
  - CONSTIPATION [None]
  - NAUSEA [None]
  - RECTAL HAEMORRHAGE [None]
  - VOMITING [None]
  - WEIGHT DECREASED [None]
